FAERS Safety Report 25650946 (Version 1)
Quarter: 2025Q3

REPORT INFORMATION
  Report Type: Spontaneous
  Country: US (occurrence: US)
  Receive Date: 20250806
  Receipt Date: 20250806
  Transmission Date: 20251020
  Serious: Yes (Other)
  Sender: REGENERON
  Company Number: US-REGENERON PHARMACEUTICALS, INC.-2025-123498

PATIENT
  Sex: Female

DRUGS (2)
  1. EYLEA [Suspect]
     Active Substance: AFLIBERCEPT
     Indication: Neovascular age-related macular degeneration
  2. EYLEA [Suspect]
     Active Substance: AFLIBERCEPT
     Dates: start: 2025, end: 2025

REACTIONS (8)
  - Blindness transient [Recovered/Resolved]
  - Intra-ocular injection complication [Recovered/Resolved]
  - Unevaluable event [Unknown]
  - Abnormal sensation in eye [Unknown]
  - Intraocular pressure increased [Unknown]
  - Lacrimation increased [Unknown]
  - Eye pain [Unknown]
  - Vitreous floaters [Unknown]

NARRATIVE: CASE EVENT DATE: 20250101
